FAERS Safety Report 16355795 (Version 1)
Quarter: 2019Q2

REPORT INFORMATION
  Report Type: Spontaneous
  Country: ES (occurrence: ES)
  Receive Date: 20190525
  Receipt Date: 20190525
  Transmission Date: 20190711
  Serious: Yes (Congenital Anomaly)
  Sender: FDA-Public Use
  Company Number: PHHY2019ES116220

PATIENT
  Age: 40 Year
  Sex: Female
  Weight: 55 kg

DRUGS (2)
  1. COSENTYX [Suspect]
     Active Substance: SECUKINUMAB
     Indication: PSORIATIC ARTHROPATHY
     Dosage: 300 MG, QMO
     Route: 058
     Dates: start: 20170501
  2. COSENTYX [Suspect]
     Active Substance: SECUKINUMAB
     Indication: SACROILIITIS

REACTIONS (1)
  - Abortion spontaneous [Unknown]

NARRATIVE: CASE EVENT DATE: 20190309
